FAERS Safety Report 25616982 (Version 1)
Quarter: 2025Q3

REPORT INFORMATION
  Report Type: Spontaneous
  Country: US (occurrence: None)
  Receive Date: 20250728
  Receipt Date: 20250728
  Transmission Date: 20251021
  Serious: Yes (Life-Threatening, Disabling)
  Sender: FDA-CTU
  Company Number: None

PATIENT
  Age: 22 Year
  Sex: Female
  Weight: 63 kg

DRUGS (2)
  1. SERTRALINE [Suspect]
     Active Substance: SERTRALINE HYDROCHLORIDE
     Indication: Depression
     Dates: start: 20220201, end: 20241214
  2. NP THYROID [Concomitant]
     Active Substance: LEVOTHYROXINE\LIOTHYRONINE

REACTIONS (17)
  - Sexual dysfunction [None]
  - Hypoaesthesia [None]
  - Anorgasmia [None]
  - Orgasmic sensation decreased [None]
  - Genital atrophy [None]
  - Disturbance in sexual arousal [None]
  - Vision blurred [None]
  - Night blindness [None]
  - Hypoacusis [None]
  - Cognitive disorder [None]
  - Amnesia [None]
  - Dyslexia [None]
  - Aphasia [None]
  - Confusional state [None]
  - Hypoaesthesia [None]
  - Hypoaesthesia [None]
  - Sexual dysfunction [None]

NARRATIVE: CASE EVENT DATE: 20250723
